FAERS Safety Report 14220441 (Version 1)
Quarter: 2017Q4

REPORT INFORMATION
  Report Type: Spontaneous
  Country: US (occurrence: US)
  Receive Date: 20171124
  Receipt Date: 20171124
  Transmission Date: 20180321
  Serious: Yes (Other)
  Sender: FDA-Public Use
  Company Number: US-BRISTOL-MYERS SQUIBB COMPANY-BMS-2017-106532

PATIENT

DRUGS (1)
  1. ABILIFY [Suspect]
     Active Substance: ARIPIPRAZOLE
     Indication: PRODUCT USED FOR UNKNOWN INDICATION
     Dosage: UNK
     Route: 065
     Dates: start: 20031103, end: 20110925

REACTIONS (5)
  - Suicidal ideation [Unknown]
  - Gambling [Unknown]
  - Compulsive shopping [Unknown]
  - Eating disorder [Unknown]
  - Obsessive-compulsive disorder [Unknown]
